FAERS Safety Report 16903183 (Version 2)
Quarter: 2019Q4

REPORT INFORMATION
  Report Type: Spontaneous
  Country: HK (occurrence: HK)
  Receive Date: 20191010
  Receipt Date: 20191023
  Transmission Date: 20200122
  Serious: Yes (Other)
  Sender: FDA-Public Use
  Company Number: HK-ROCHE-2426643

PATIENT

DRUGS (1)
  1. LUCENTIS [Suspect]
     Active Substance: RANIBIZUMAB
     Indication: PRODUCT USED FOR UNKNOWN INDICATION
     Dosage: UNK
     Route: 031

REACTIONS (4)
  - Erythema [Recovered/Resolved]
  - Endophthalmitis [Recovered/Resolved]
  - Oedema [Recovered/Resolved]
  - Anterior chamber inflammation [Recovered/Resolved]
